FAERS Safety Report 6953761-1 (Version None)
Quarter: 2010Q3

REPORT INFORMATION
  Report Type: 
  Country: None (occurrence: None)
  Receive Date: 20100829
  Receipt Date: 20100624
  Transmission Date: 20110219
  Serious: No
  Sender: FDA-Public Use
  Company Number: US-ABBOTT-10P-163-0653442-00

PATIENT
  Sex: Male
  Weight: 59.02 kg

DRUGS (3)
  1. NIASPAN [Suspect]
     Indication: HYPERLIPIDAEMIA
     Dosage: AT NIGHT
     Dates: start: 20100622
  2. BLOOD PRESSURE MEDICATION [Concomitant]
     Indication: BLOOD PRESSURE
  3. HEART MEDICATION [Concomitant]
     Indication: CARDIAC DISORDER

REACTIONS (5)
  - ABDOMINAL PAIN UPPER [None]
  - BURNING SENSATION [None]
  - ERYTHEMA [None]
  - FLUSHING [None]
  - SKIN BURNING SENSATION [None]
